FAERS Safety Report 9777384 (Version 1)
Quarter: 2013Q4

REPORT INFORMATION
  Report Type: Spontaneous
  Country: BR (occurrence: BR)
  Receive Date: 20131221
  Receipt Date: 20131221
  Transmission Date: 20140711
  Serious: Yes (Other)
  Sender: FDA-Public Use
  Company Number: PHHY2013BR149750

PATIENT
  Age: 59 Year
  Sex: Male
  Weight: 86 kg

DRUGS (10)
  1. GALVUS MET [Suspect]
     Indication: DIABETES MELLITUS
     Dosage: 2 TABLETS (850/50 MG), DAILY
     Route: 048
     Dates: start: 20100505
  2. DIOVAN HCT [Suspect]
     Indication: HYPERTENSION
     Dosage: 1 TABLET (320/25 MG), IN THE MORNING
     Route: 048
     Dates: start: 20100505
  3. TRILEPTAL / GP 47680 / TRI 476B [Suspect]
     Indication: CONVULSION PROPHYLAXIS
     Dosage: 2 TABLETS (600 MG), DAILY
     Route: 048
     Dates: start: 20100505
  4. CLOPIDOGREL SANDOZ [Suspect]
     Indication: CEREBROVASCULAR ACCIDENT PROPHYLAXIS
     Dosage: 1 TABLET (65 MG), AFTER THE LUNCH
     Route: 048
     Dates: start: 20100505
  5. ASPIRINA [Suspect]
     Indication: ANTICOAGULANT THERAPY
     Dosage: 2 TABLETS (100 MG), AFTER THE LUNCH
     Route: 048
     Dates: start: 20100505
  6. LIPITOR [Suspect]
     Indication: CEREBROVASCULAR ACCIDENT PROPHYLAXIS
     Dosage: 1 TABLET (40 MG), AT NIGHT
     Route: 048
     Dates: start: 20100505
  7. SELOZOK [Suspect]
     Indication: CEREBROVASCULAR ACCIDENT PROPHYLAXIS
     Dosage: 1 TABLET (100 MG), AT NIGHT
     Route: 048
     Dates: start: 20100505
  8. ROXFLAN [Suspect]
     Indication: CEREBROVASCULAR ACCIDENT PROPHYLAXIS
     Dosage: 1 TABLET (10 MG), AT NIGHT
     Route: 048
     Dates: start: 20100505
  9. OLEPTAL [Concomitant]
     Indication: CONVULSION PROPHYLAXIS
     Dosage: 2 TABLETS (300 MG), A DAY
     Route: 048
  10. ATORVASTATIN CALCIUM [Concomitant]
     Indication: CEREBROVASCULAR ACCIDENT PROPHYLAXIS
     Dosage: 1 TABLET, AT NIGHT
     Route: 048

REACTIONS (1)
  - Convulsion [Recovered/Resolved]
